APPROVED DRUG PRODUCT: NABUMETONE
Active Ingredient: NABUMETONE
Strength: 500MG
Dosage Form/Route: TABLET;ORAL
Application: A075280 | Product #001 | TE Code: AB
Applicant: CHARTWELL RX SCIENCES LLC
Approved: Feb 25, 2002 | RLD: No | RS: No | Type: RX